FAERS Safety Report 17731331 (Version 3)
Quarter: 2020Q4

REPORT INFORMATION
  Report Type: Spontaneous
  Country: US (occurrence: US)
  Receive Date: 20200430
  Receipt Date: 20201030
  Transmission Date: 20210113
  Serious: No
  Sender: FDA-Public Use
  Company Number: US-AKCEA THERAPEUTICS-2020IS001063

PATIENT
  Age: 69 Year
  Sex: Female

DRUGS (2)
  1. ISSD (INTEGRATED SYRINGE SAFETY DEVICE) [Suspect]
     Active Substance: DEVICE
  2. TEGSEDI [Suspect]
     Active Substance: INOTERSEN SODIUM
     Indication: HEREDITARY NEUROPATHIC AMYLOIDOSIS
     Route: 058
     Dates: end: 20200124

REACTIONS (19)
  - Influenza like illness [Unknown]
  - Chills [Not Recovered/Not Resolved]
  - Fatigue [Unknown]
  - Injection site warmth [Unknown]
  - Anxiety [Unknown]
  - Drug hypersensitivity [Not Recovered/Not Resolved]
  - Tremor [Unknown]
  - Skin burning sensation [Unknown]
  - Off label use [Unknown]
  - Nausea [Recovered/Resolved]
  - Retching [Not Recovered/Not Resolved]
  - Intentional underdose [Unknown]
  - Feeling abnormal [Not Recovered/Not Resolved]
  - Hypophagia [Unknown]
  - Weight decreased [Unknown]
  - Vomiting [Unknown]
  - Injection site pruritus [Unknown]
  - Injection site erythema [Unknown]
  - Gastrointestinal disorder [Unknown]
